FAERS Safety Report 4977223-6 (Version None)
Quarter: 2006Q2

REPORT INFORMATION
  Report Type: 
  Country: None (occurrence: None)
  Receive Date: 20060419
  Receipt Date: 20051207
  Transmission Date: 20061013
  Serious: Yes (Hospitalization)
  Sender: FDA-Public Use
  Company Number: US-MERCK-0512USA01290

PATIENT
  Age: 72 Year
  Sex: Male
  Weight: 87 kg

DRUGS (13)
  1. VIOXX [Suspect]
     Indication: SHOULDER PAIN
     Route: 048
     Dates: start: 20011214, end: 20021001
  2. ENALAPRIL MALEATE [Concomitant]
     Route: 048
     Dates: start: 20011031, end: 20040811
  3. ZOCOR [Concomitant]
     Indication: BLOOD CHOLESTEROL INCREASED
     Route: 048
     Dates: start: 19981204, end: 20040811
  4. CLONIDINE [Concomitant]
     Route: 048
     Dates: start: 20010124, end: 20020115
  5. ZOLADEX [Concomitant]
     Indication: PROSTATE CANCER
     Route: 065
  6. BICALUTAMIDE [Concomitant]
     Indication: PROSTATE CANCER
     Route: 065
  7. METOPROLOL [Concomitant]
     Route: 048
     Dates: start: 19990223, end: 20041018
  8. METRONIDAZOLE [Concomitant]
     Route: 061
  9. MEGESTROL ACETATE [Concomitant]
     Route: 065
  10. NITROGLYCERIN [Concomitant]
     Route: 065
  11. PLAVIX [Concomitant]
     Indication: HYPERCHOLESTEROLAEMIA
     Route: 048
     Dates: start: 20020919, end: 20040811
  12. ISOSORBIDE MONONITRATE [Concomitant]
     Route: 048
  13. ACETAMINOPHEN AND OXYCODONE HYDROCHLORIDE [Concomitant]
     Route: 048
     Dates: start: 19990211, end: 20040309

REACTIONS (7)
  - ANGINA PECTORIS [None]
  - BACK PAIN [None]
  - CARDIAC FAILURE [None]
  - CATHETERISATION CARDIAC [None]
  - GASTROOESOPHAGEAL REFLUX DISEASE [None]
  - MYOCARDIAL INFARCTION [None]
  - ROAD TRAFFIC ACCIDENT [None]
